FAERS Safety Report 9769630 (Version 4)
Quarter: 2014Q1

REPORT INFORMATION
  Report Type: Report from Study
  Country: CA (occurrence: CA)
  Receive Date: 20131218
  Receipt Date: 20140306
  Transmission Date: 20141002
  Serious: Yes (Hospitalization, Other)
  Sender: FDA-Public Use
  Company Number: CA-INCYTE CORPORATION-2013IN000382

PATIENT
  Age: 72 Year
  Sex: Female

DRUGS (5)
  1. JAKAVI [Suspect]
     Indication: MYELOFIBROSIS
     Dosage: 15 MG, BID
     Route: 048
     Dates: start: 20120828
  2. JAKAVI [Suspect]
     Dosage: 5 MG, BID
     Route: 048
  3. ASA [Concomitant]
  4. ASPIRIN [Concomitant]
  5. BISOPROLOL [Concomitant]

REACTIONS (9)
  - Confusional state [Unknown]
  - Cystitis [Unknown]
  - Splenomegaly [Unknown]
  - Anaemia [Not Recovered/Not Resolved]
  - Fatigue [Not Recovered/Not Resolved]
  - Asthenia [Unknown]
  - Urine output decreased [Unknown]
  - Dysuria [Unknown]
  - Micturition urgency [None]
